FAERS Safety Report 6288021-8 (Version None)
Quarter: 2009Q3

REPORT INFORMATION
  Report Type: 
  Country: None (occurrence: None)
  Receive Date: 20090729
  Receipt Date: 20090722
  Transmission Date: 20100115
  Serious: Yes (Hospitalization)
  Sender: FDA-Public Use
  Company Number: BR-ROCHE-641879

PATIENT
  Sex: Male
  Weight: 45 kg

DRUGS (3)
  1. RIVOTRIL [Suspect]
     Indication: DEPRESSION
     Dosage: AT NIGHT
     Route: 048
     Dates: start: 20090501, end: 20090625
  2. PENTOXIFYLLINE [Concomitant]
     Route: 048
     Dates: start: 20090501, end: 20090601
  3. PREDSIM [Concomitant]
     Route: 048
     Dates: start: 20090501, end: 20090601

REACTIONS (8)
  - AMNESIA [None]
  - ASTHENIA [None]
  - DEAFNESS [None]
  - DIARRHOEA [None]
  - DIZZINESS [None]
  - DRY THROAT [None]
  - INSOMNIA [None]
  - TREMOR [None]
